FAERS Safety Report 8812309 (Version 1)
Quarter: 2012Q4

REPORT INFORMATION
  Report Type: 
  Country: US (occurrence: US)
  Receive Date: 20120927
  Receipt Date: 20120927
  Transmission Date: 20130627
  Serious: Yes (Hospitalization)
  Sender: FDA-Public Use
  Company Number: US-BAYER-2012-100293

PATIENT
  Age: 16 Year
  Sex: Female
  Weight: 99.77 kg

DRUGS (7)
  1. YAZ [Suspect]
     Indication: MENORRHAGIA
  2. CATAFLAM [Concomitant]
     Indication: PAIN
     Dosage: 50 mg, PRN
     Route: 048
  3. IBUPROFEN [Concomitant]
     Dosage: 800 mg, daily
     Route: 048
  4. IRON SULFATE [Concomitant]
     Dosage: 324 mg, TID
  5. VICODIN [Concomitant]
     Dosage: 5 mg, PRN
  6. NSAID^S [Concomitant]
     Indication: DYSMENORRHOEA
  7. NSAID^S [Concomitant]
     Indication: PAIN

REACTIONS (2)
  - Deep vein thrombosis [Recovered/Resolved]
  - Pulmonary embolism [Recovered/Resolved]
